FAERS Safety Report 13493892 (Version 1)
Quarter: 2017Q2

REPORT INFORMATION
  Report Type: Report from Study
  Country: US (occurrence: US)
  Receive Date: 20170427
  Receipt Date: 20170427
  Transmission Date: 20170830
  Serious: Yes (Other)
  Sender: FDA-Public Use
  Company Number: US-GILEAD-2017-0269230

PATIENT
  Age: 59 Year
  Sex: Male

DRUGS (1)
  1. IDELALISIB [Suspect]
     Active Substance: IDELALISIB
     Indication: B-CELL LYMPHOMA
     Dosage: 200 MG, UNK
     Route: 048
     Dates: start: 20170119, end: 20170329

REACTIONS (2)
  - Off label use [Recovered/Resolved]
  - Disease progression [Not Recovered/Not Resolved]
